FAERS Safety Report 6928992-7 (Version None)
Quarter: 2010Q3

REPORT INFORMATION
  Report Type: 
  Country: None (occurrence: None)
  Receive Date: 20100817
  Receipt Date: 20100804
  Transmission Date: 20110219
  Serious: Yes (Hospitalization, Other)
  Sender: FDA-Public Use
  Company Number: FR-ABBOTT-10P-056-0647019-00

PATIENT
  Sex: Female
  Weight: 52 kg

DRUGS (13)
  1. HUMIRA [Suspect]
     Indication: CROHN'S DISEASE
     Dosage: 160MG LOADING DOSE
     Route: 058
     Dates: start: 20100414, end: 20100414
  2. HUMIRA [Suspect]
     Dosage: 80 MG LOADING DOSE
     Route: 058
  3. HUMIRA [Suspect]
     Route: 058
  4. IMUREL [Concomitant]
     Indication: CROHN'S DISEASE
     Dosage: 50MG, FOUR TIMES
     Dates: start: 20061201
  5. IMUREL [Concomitant]
     Dates: start: 20100301, end: 20100503
  6. CORTANCYL [Concomitant]
     Indication: CROHN'S DISEASE
     Dates: start: 20060302
  7. CORTANCYL [Concomitant]
     Dates: start: 20100301
  8. IMODIUM [Concomitant]
     Dosage: 1 CAPSULE/STOOL
  9. DEBRIDAT [Concomitant]
     Indication: PRODUCT USED FOR UNKNOWN INDICATION
     Route: 048
  10. POTASSIUM [Concomitant]
     Indication: PRODUCT USED FOR UNKNOWN INDICATION
  11. TRIFLUCAN [Concomitant]
     Indication: PRODUCT USED FOR UNKNOWN INDICATION
  12. ACETAMINOPHEN [Concomitant]
     Indication: PRODUCT USED FOR UNKNOWN INDICATION
  13. MOTILIUM [Concomitant]
     Indication: PRODUCT USED FOR UNKNOWN INDICATION

REACTIONS (9)
  - CARDIAC TAMPONADE [None]
  - CYTOMEGALOVIRUS INFECTION [None]
  - HISTIOCYTOSIS HAEMATOPHAGIC [None]
  - ORAL FUNGAL INFECTION [None]
  - PANCYTOPENIA [None]
  - PERICARDITIS [None]
  - PYREXIA [None]
  - RHINORRHOEA [None]
  - SEPSIS [None]
